FAERS Safety Report 15376760 (Version 2)
Quarter: 2018Q3

REPORT INFORMATION
  Report Type: Spontaneous
  Country: IL (occurrence: IL)
  Receive Date: 20180913
  Receipt Date: 20180918
  Transmission Date: 20181010
  Serious: Yes (Life-Threatening, Hospitalization)
  Sender: FDA-Public Use
  Company Number: IL-ROCHE-2180246

PATIENT
  Age: 72 Year
  Sex: Male
  Weight: 90 kg

DRUGS (3)
  1. ACTILYSE [Suspect]
     Active Substance: ALTEPLASE
     Indication: CEREBROVASCULAR ACCIDENT
     Route: 042
     Dates: start: 20180830
  2. CLEXAN [Concomitant]
     Active Substance: ENOXAPARIN SODIUM
  3. COUMADIN [Concomitant]
     Active Substance: WARFARIN SODIUM

REACTIONS (7)
  - Dysarthria [Unknown]
  - Hemiparesis [Unknown]
  - Facial paresis [Unknown]
  - Sensory disturbance [Unknown]
  - Vomiting [Unknown]
  - Headache [Unknown]
  - Haemorrhage intracranial [Not Recovered/Not Resolved]

NARRATIVE: CASE EVENT DATE: 20180830
